FAERS Safety Report 24227076 (Version 1)
Quarter: 2024Q3

REPORT INFORMATION
  Report Type: Spontaneous
  Country: US (occurrence: None)
  Receive Date: 20240819
  Receipt Date: 20240819
  Transmission Date: 20241017
  Serious: Yes (Hospitalization, Other)
  Sender: Public
  Company Number: None

PATIENT
  Age: 70 Year
  Sex: Male
  Weight: 98 kg

DRUGS (16)
  1. TECARTUS [Suspect]
     Active Substance: BREXUCABTAGENE AUTOLEUCEL
     Indication: Mantle cell lymphoma
     Dosage: OTHER FREQUENCY : ONCE;?
     Route: 042
  2. ACETAMINOPHEN [Concomitant]
     Active Substance: ACETAMINOPHEN
     Dates: start: 20240206, end: 20240206
  3. DIPHENHYDRAMINE HYDROCHLORIDE [Concomitant]
     Active Substance: DIPHENHYDRAMINE HYDROCHLORIDE
     Dates: start: 20240206, end: 20240206
  4. POTASSIUM CHLORIDE [Concomitant]
     Active Substance: POTASSIUM CHLORIDE
     Dates: start: 20240206, end: 20240210
  5. piperacillin / tazobactam / dextrose [Concomitant]
     Dates: start: 20240207, end: 20240210
  6. DEXAMETHASONE [Concomitant]
     Active Substance: DEXAMETHASONE
     Dates: start: 20240207, end: 20240215
  7. TOCILIZUMAB [Concomitant]
     Active Substance: TOCILIZUMAB
     Dates: start: 20240207, end: 20240210
  8. MAGNESIUM SULFATE [Concomitant]
     Active Substance: MAGNESIUM SULFATE\MAGNESIUM SULFATE HEPTAHYDRATE
     Dates: start: 20240210, end: 20240210
  9. IOPAMIDOL [Concomitant]
     Active Substance: IOPAMIDOL
     Dates: start: 20240210, end: 20240210
  10. VANCOMYCIN [Concomitant]
     Active Substance: VANCOMYCIN
     Dates: start: 20240210, end: 20240212
  11. FLUCONAZOLE [Concomitant]
     Active Substance: FLUCONAZOLE
     Dates: start: 20240207, end: 20240210
  12. LEVETIRACETAM [Concomitant]
     Active Substance: LEVETIRACETAM
     Dates: start: 20240206, end: 20240210
  13. ZIPRASIDONE [Concomitant]
     Active Substance: ZIPRASIDONE
     Dates: start: 20240211, end: 20240211
  14. LACOSAMIDE [Concomitant]
     Active Substance: LACOSAMIDE
     Dates: start: 20240211, end: 20240211
  15. ANAKINRA [Concomitant]
     Active Substance: ANAKINRA
     Dates: start: 20240211, end: 20240212
  16. acetazolamide soxium [Concomitant]
     Dates: start: 20240212, end: 20240212

REACTIONS (1)
  - Immune effector cell-associated neurotoxicity syndrome [None]

NARRATIVE: CASE EVENT DATE: 20240211
